FAERS Safety Report 8764459 (Version 2)
Quarter: 2012Q4

REPORT INFORMATION
  Report Type: 
  Country: US (occurrence: US)
  Receive Date: 20120831
  Receipt Date: 20120914
  Transmission Date: 20130627
  Serious: Yes (Hospitalization, Disabling, Other)
  Sender: FDA-Public Use
  Company Number: US-ASTRAZENECA-2012SE60971

PATIENT
  Age: 58 Year
  Sex: Female
  Weight: 49.9 kg

DRUGS (5)
  1. SEROQUEL [Suspect]
     Indication: BIPOLAR I DISORDER
     Route: 048
     Dates: start: 2002
  2. KEFLEX [Concomitant]
     Indication: CELLULITIS
     Dosage: EVERY SIX HOURLY
     Route: 048
     Dates: start: 20120626, end: 201208
  3. BACTRIM [Concomitant]
     Indication: CELLULITIS
     Dosage: BID
     Route: 048
     Dates: start: 20120726, end: 201208
  4. GLEOMYACIN [Concomitant]
     Indication: CELLULITIS
     Route: 048
     Dates: start: 20120723, end: 201207
  5. VALIUM [Concomitant]
     Indication: ANXIETY
     Route: 048
     Dates: start: 2004

REACTIONS (10)
  - Meniscus injury [Unknown]
  - Joint stiffness [Recovered/Resolved]
  - Cellulitis [Recovered/Resolved]
  - Thrombosis [Recovered/Resolved]
  - Fall [Unknown]
  - Contusion [Unknown]
  - Impaired driving ability [Unknown]
  - Hepatic enzyme abnormal [Unknown]
  - Feeling abnormal [Unknown]
  - Drug dose omission [Unknown]
